FAERS Safety Report 7043428-6 (Version None)
Quarter: 2010Q4

REPORT INFORMATION
  Report Type: 
  Country: None (occurrence: None)
  Receive Date: 20101013
  Receipt Date: 20090923
  Transmission Date: 20110411
  Serious: No
  Sender: FDA-Public Use
  Company Number: US-BAUSCH-2009BL004812

PATIENT
  Age: 70 Year
  Sex: Female

DRUGS (3)
  1. NEOMYCIN AND POLYMXIN B SULFATES AND HYDROCORTISONE [Suspect]
     Indication: EAR DISCOMFORT
     Route: 001
     Dates: start: 20090911, end: 20090915
  2. SYNTHROID [Concomitant]
  3. MIRAPEX [Concomitant]

REACTIONS (2)
  - EAR PRURITUS [None]
  - MEDICATION RESIDUE [None]
